FAERS Safety Report 6401254-2 (Version None)
Quarter: 2009Q4

REPORT INFORMATION
  Report Type: 
  Country: None (occurrence: None)
  Receive Date: 20091015
  Receipt Date: 20070322
  Transmission Date: 20100525
  Serious: Yes (Disabling)
  Sender: FDA-Public Use
  Company Number: US-ASTRAZENECA-2006UW08117

PATIENT
  Sex: Male
  Weight: 112.9 kg

DRUGS (9)
  1. SEROQUEL [Suspect]
     Dosage: 75-400 MG
     Route: 048
     Dates: start: 20030806, end: 20060307
  2. EFFEXOR [Concomitant]
     Dates: start: 20021001
  3. ZYPREXA [Concomitant]
     Dates: start: 20021001
  4. NEURONTIN [Concomitant]
     Dates: start: 20030806
  5. LEXAPRO [Concomitant]
     Dates: start: 20030806
  6. WELLBUTRIN SR [Concomitant]
     Dates: start: 20011120, end: 20011101
  7. WELLBUTRIN SR [Concomitant]
     Dates: start: 20011130
  8. TRAZODONE [Concomitant]
     Indication: SLEEP DISORDER
     Dates: start: 20011120
  9. ATIVAN [Concomitant]
     Indication: ANXIETY
     Dosage: P.R.N
     Dates: start: 20011120

REACTIONS (1)
  - ILL-DEFINED DISORDER [None]
